FAERS Safety Report 14471181 (Version 1)
Quarter: 2018Q1

REPORT INFORMATION
  Report Type: Spontaneous
  Country: US (occurrence: US)
  Receive Date: 20180130
  Receipt Date: 20180130
  Transmission Date: 20180509
  Serious: Yes (Disabling)
  Sender: FDA-Public Use
  Company Number: None

PATIENT
  Age: 54 Year
  Sex: Female
  Weight: 75.15 kg

DRUGS (3)
  1. LEVOTHYOXIINE [Concomitant]
  2. LATUDA [Suspect]
     Active Substance: LURASIDONE HYDROCHLORIDE
     Indication: MENTAL DISORDER
     Dosage: ?          QUANTITY:1 TABLET(S);?
     Route: 048
  3. TOPROMATE [Concomitant]

REACTIONS (5)
  - Nausea [None]
  - Low density lipoprotein increased [None]
  - Arteriosclerosis [None]
  - Weight increased [None]
  - Vomiting [None]

NARRATIVE: CASE EVENT DATE: 20180128
